FAERS Safety Report 7221805-8 (Version None)
Quarter: 2011Q1

REPORT INFORMATION
  Report Type: 
  Country: None (occurrence: None)
  Receive Date: 20110104
  Receipt Date: 20101222
  Transmission Date: 20110831
  Serious: Yes (Other)
  Sender: FDA-Public Use
  Company Number: 2010S1000296

PATIENT
  Age: 6 Month
  Sex: Female
  Weight: 4.6 kg

DRUGS (11)
  1. LASIX [Concomitant]
  2. HEPARIN [Concomitant]
  3. HYPNOTIS AND SEDATIVES [Concomitant]
  4. INOMAX [Suspect]
     Indication: CONGENITAL CARDIOVASCULAR ANOMALY
     Dosage: 20 PPM; CONT; INH
     Route: 055
     Dates: start: 20101213, end: 20101222
  5. INOMAX [Suspect]
     Indication: LUNG DISORDER
     Dosage: 20 PPM; CONT; INH
     Route: 055
     Dates: start: 20101213, end: 20101222
  6. INOMAX [Suspect]
     Indication: VENOUS OXYGEN SATURATION
     Dosage: 20 PPM; CONT; INH
     Route: 055
     Dates: start: 20101213, end: 20101222
  7. ALBUTEROL [Concomitant]
  8. INOMAX [Suspect]
  9. EPINEPHRINE [Concomitant]
  10. TPN ELECTROLYTES IN PLASTIC CONTAINER [Concomitant]
  11. ANALGESICS [Concomitant]

REACTIONS (5)
  - NO THERAPEUTIC RESPONSE [None]
  - ACCIDENTAL EXPOSURE [None]
  - OXYGEN SATURATION DECREASED [None]
  - BLOOD PRESSURE DECREASED [None]
  - MEDICAL DEVICE COMPLICATION [None]
